FAERS Safety Report 13568731 (Version 1)
Quarter: 2017Q2

REPORT INFORMATION
  Report Type: Spontaneous
  Country: US (occurrence: US)
  Receive Date: 20170522
  Receipt Date: 20170522
  Transmission Date: 20170830
  Serious: No
  Sender: FDA-Public Use
  Company Number: US-BRISTOL-MYERS SQUIBB COMPANY-BMS-2017-044180

PATIENT
  Age: 23 Year
  Sex: Female

DRUGS (1)
  1. SPRYCEL [Suspect]
     Active Substance: DASATINIB
     Indication: LEUKAEMIA
     Dosage: 70 MG, BID
     Route: 048
     Dates: start: 20140422

REACTIONS (2)
  - Off label use [Unknown]
  - Blood urine present [Unknown]

NARRATIVE: CASE EVENT DATE: 20170517
